FAERS Safety Report 7717541-1 (Version None)
Quarter: 2011Q3

REPORT INFORMATION
  Report Type: 
  Country: None (occurrence: None)
  Receive Date: 20110830
  Receipt Date: 20110817
  Transmission Date: 20111222
  Serious: Yes (Death)
  Sender: FDA-Public Use
  Company Number: CA-ELI_LILLY_AND_COMPANY-CA201108005802

PATIENT
  Age: 48 Year
  Sex: Female

DRUGS (11)
  1. SYNTHROID [Concomitant]
  2. COUMADIN [Concomitant]
  3. FORTEO [Suspect]
     Indication: OSTEOPOROSIS
     Dosage: 20 UG, QD
     Route: 058
     Dates: start: 20100908, end: 20110816
  4. GRAVOL TAB [Concomitant]
  5. CALCIUM CARBONATE [Concomitant]
  6. FLAXSEED OIL [Concomitant]
  7. ASCORBIC ACID [Concomitant]
  8. VITAMIN D [Concomitant]
  9. CRESTOR [Concomitant]
  10. QUININE SULFATE [Concomitant]
  11. MORPHINE SULFATE [Concomitant]

REACTIONS (2)
  - ARTHRITIS [None]
  - DEATH [None]
